FAERS Safety Report 10974181 (Version 3)
Quarter: 2018Q3

REPORT INFORMATION
  Report Type: Spontaneous
  Country: US (occurrence: US)
  Receive Date: 20150401
  Receipt Date: 20180926
  Transmission Date: 20181010
  Serious: Yes (Death, Hospitalization, Other)
  Sender: FDA-Public Use
  Company Number: US-CIPLA LTD.-2015US02033

PATIENT

DRUGS (8)
  1. FUROSEMIDE. [Concomitant]
     Active Substance: FUROSEMIDE
     Indication: OEDEMA
     Dosage: 20 MG, QD, AS NEEDED
     Route: 065
  2. ROPINIROLE. [Concomitant]
     Active Substance: ROPINIROLE
     Indication: PRODUCT USED FOR UNKNOWN INDICATION
     Dosage: 1 MG, EVERY NIGHT
     Route: 065
  3. DONEPEZIL. [Suspect]
     Active Substance: DONEPEZIL
     Dosage: 15 MG, PER NIGHT
     Route: 065
  4. DONEPEZIL. [Suspect]
     Active Substance: DONEPEZIL
     Dosage: 5 MG, PER DAY
     Route: 065
  5. DONEPEZIL. [Suspect]
     Active Substance: DONEPEZIL
     Dosage: 10 MG, PER DAY
     Route: 065
  6. DONEPEZIL. [Suspect]
     Active Substance: DONEPEZIL
     Indication: PRODUCT USED FOR UNKNOWN INDICATION
     Dosage: 5 MG, QD, AT BEDTIME
     Route: 065
     Dates: start: 2011
  7. AMITRIPTYLINE [Concomitant]
     Active Substance: AMITRIPTYLINE
     Indication: PRODUCT USED FOR UNKNOWN INDICATION
     Dosage: 25 MG, QD PER NIGHT
     Route: 065
  8. FLUTICASONE. [Concomitant]
     Active Substance: FLUTICASONE
     Indication: PRODUCT USED FOR UNKNOWN INDICATION
     Dosage: 50 ?G, ONCE/DAY, SPRAY IN BOTH NOSTRILS
     Route: 045

REACTIONS (16)
  - Eructation [Unknown]
  - Urosepsis [Recovered/Resolved]
  - Hypotension [Unknown]
  - Aggression [Unknown]
  - Lumbar vertebral fracture [Unknown]
  - Acute kidney injury [Unknown]
  - Impulsive behaviour [Unknown]
  - Thoracic vertebral fracture [Unknown]
  - Pleural effusion [Unknown]
  - Interstitial lung disease [Unknown]
  - Tachycardia [Unknown]
  - Hyporesponsive to stimuli [Unknown]
  - Hiccups [Unknown]
  - Abdominal pain upper [Unknown]
  - Asthenia [Unknown]
  - Death [Fatal]

NARRATIVE: CASE EVENT DATE: 201310
